FAERS Safety Report 8058141-6 (Version None)
Quarter: 2012Q1

REPORT INFORMATION
  Report Type: 
  Country: None (occurrence: None)
  Receive Date: 20120111
  Receipt Date: 20120102
  Transmission Date: 20120608
  Serious: Yes (Other)
  Sender: FDA-Public Use
  Company Number: 2012SP000291

PATIENT
  Sex: Female

DRUGS (2)
  1. RIBAVIRIN [Suspect]
     Indication: HEPATITIS C
     Dates: start: 20020101
  2. RIBAVIRIN [Suspect]
     Indication: HEPATITIS C
     Dates: start: 19940101

REACTIONS (3)
  - LABORATORY TEST ABNORMAL [None]
  - CHOLECYSTECTOMY [None]
  - HEPATIC CIRRHOSIS [None]
